FAERS Safety Report 9798891 (Version 3)
Quarter: 2015Q3

REPORT INFORMATION
  Report Type: Spontaneous
  Country: US (occurrence: US)
  Receive Date: 20140106
  Receipt Date: 20150806
  Transmission Date: 20151125
  Serious: No
  Sender: FDA-Public Use
  Company Number: US-GILEAD-2010-0032267

PATIENT
  Age: 83 Year
  Sex: Female
  Weight: 58.97 kg

DRUGS (19)
  1. LASIX [Concomitant]
     Active Substance: FUROSEMIDE
  2. HYDROCODONE [Concomitant]
     Active Substance: HYDROCODONE
  3. LETAIRIS [Suspect]
     Active Substance: AMBRISENTAN
     Indication: PULMONARY ARTERIAL HYPERTENSION
     Route: 048
     Dates: start: 20090122
  4. TRICOR [Concomitant]
     Active Substance: FENOFIBRATE
  5. AMBIEN [Concomitant]
     Active Substance: ZOLPIDEM TARTRATE
  6. METAMUCIL [Concomitant]
     Active Substance: PLANTAGO SEED
  7. NEURONTIN [Concomitant]
     Active Substance: GABAPENTIN
  8. LIDODERM [Concomitant]
     Active Substance: LIDOCAINE
  9. CALTRATE WITH VITAMIN D [Concomitant]
     Active Substance: CALCIUM CARBONATE\CHOLECALCIFEROL
  10. ALLOPURINOL. [Concomitant]
     Active Substance: ALLOPURINOL
  11. POTASSIUM CHLORIDE. [Concomitant]
     Active Substance: POTASSIUM CHLORIDE
  12. PREMARIN [Concomitant]
     Active Substance: ESTROGENS, CONJUGATED
  13. NIFEDIPINE XL [Concomitant]
     Active Substance: NIFEDIPINE
  14. LORAZEPAM. [Concomitant]
     Active Substance: LORAZEPAM
  15. LEVOTHYROXINE. [Concomitant]
     Active Substance: LEVOTHYROXINE
  16. CENTRUM [Concomitant]
     Active Substance: VITAMINS
  17. OMEPRAZOLE. [Concomitant]
     Active Substance: OMEPRAZOLE
  18. TYLENOL [Concomitant]
     Active Substance: ACETAMINOPHEN
  19. TRAVATAN [Concomitant]
     Active Substance: TRAVOPROST

REACTIONS (2)
  - Peripheral swelling [Unknown]
  - Oedema [Unknown]
